FAERS Safety Report 7099103-5 (Version None)
Quarter: 2010Q4

REPORT INFORMATION
  Report Type: 
  Country: None (occurrence: None)
  Receive Date: 20101112
  Receipt Date: 20101109
  Transmission Date: 20110411
  Serious: Yes (Other)
  Sender: FDA-Public Use
  Company Number: A0891397A

PATIENT
  Age: 39 Year
  Sex: Male

DRUGS (7)
  1. ADVAIR DISKUS 100/50 [Suspect]
     Indication: ASTHMA
     Dosage: 1PUFF PER DAY
     Route: 055
     Dates: start: 20090101, end: 20101107
  2. ADVAIR DISKUS 100/50 [Suspect]
     Dosage: 1PUFF TWICE PER DAY
     Route: 055
     Dates: end: 20090101
  3. SEREVENT [Suspect]
     Indication: ASTHMA
     Dosage: 1PUFF TWICE PER DAY
     Route: 055
     Dates: start: 20101108
  4. QVAR 40 [Concomitant]
  5. SINGULAIR [Concomitant]
  6. LISINOPRIL [Concomitant]
  7. CRESTOR [Concomitant]

REACTIONS (8)
  - CHEST DISCOMFORT [None]
  - DEPRESSED LEVEL OF CONSCIOUSNESS [None]
  - DEPRESSION [None]
  - DRUG INEFFECTIVE [None]
  - DYSPNOEA [None]
  - EXPIRED DRUG ADMINISTERED [None]
  - FEELING ABNORMAL [None]
  - HEADACHE [None]
